FAERS Safety Report 4943955-9 (Version None)
Quarter: 2006Q1

REPORT INFORMATION
  Report Type: 
  Country: None (occurrence: None)
  Receive Date: 20060313
  Receipt Date: 20060313
  Transmission Date: 20060701
  Serious: No
  Sender: FDA-Public Use
  Company Number: None

PATIENT
  Age: 30 Year
  Sex: Female
  Weight: 58.9676 kg

DRUGS (1)
  1. AQUAFRESH EXTREME CLEAN GLAXOSMITHKLINE CONSUMER HEALTHCAR [Suspect]
     Indication: DENTAL DISORDER PROPHYLAXIS
     Dosage: STANDARD BID PO
     Route: 048
     Dates: start: 20060227, end: 20060309

REACTIONS (4)
  - CHAPPED LIPS [None]
  - CHEILITIS [None]
  - DRUG HYPERSENSITIVITY [None]
  - SKIN IRRITATION [None]
